FAERS Safety Report 4439724-9 (Version None)
Quarter: 2004Q3

REPORT INFORMATION
  Report Type: 
  Country: None (occurrence: None)
  Receive Date: 20040902
  Receipt Date: 20040827
  Transmission Date: 20050211
  Serious: Yes (Other)
  Sender: FDA-Public Use
  Company Number: PHEH2004US09347

PATIENT
  Age: 62 Year
  Sex: Female

DRUGS (1)
  1. TRILEPTAL [Suspect]
     Indication: NEUROPATHY
     Dosage: 300 MG, TID
     Route: 048
     Dates: start: 20040101, end: 20040826

REACTIONS (7)
  - CLUSTER HEADACHE [None]
  - EATING DISORDER [None]
  - EYE PAIN [None]
  - INSOMNIA [None]
  - NAUSEA [None]
  - VISUAL ACUITY REDUCED [None]
  - VOMITING [None]
